FAERS Safety Report 5371962-3 (Version None)
Quarter: 2007Q2

REPORT INFORMATION
  Report Type: 
  Country: None (occurrence: None)
  Receive Date: 20070625
  Receipt Date: 20070607
  Transmission Date: 20071010
  Serious: Yes (Other)
  Sender: FDA-Public Use
  Company Number: 2007EU001204

PATIENT
  Age: 78 Year
  Sex: Female
  Weight: 31.026 kg

DRUGS (7)
  1. VESICARE [Suspect]
     Indication: URINARY INCONTINENCE
     Dosage: 5 MG, UID/QD, ORAL
     Route: 048
     Dates: start: 20070314, end: 20070517
  2. ADCAL-D3 (COLECALCIFEROL) [Concomitant]
  3. ATORVASTATIN (ATORVASTATIN CALCIUM) [Concomitant]
  4. BECLOMETHASONE DIPROPIONATE [Concomitant]
  5. FLUDROCORTISONE ACETATE [Concomitant]
  6. RISEDRONATE SODIUM [Concomitant]
  7. SALBUTAMOL (SALBUTAMOL SULFATE) [Concomitant]

REACTIONS (3)
  - CONDITION AGGRAVATED [None]
  - INJURY [None]
  - SYNCOPE [None]
